FAERS Safety Report 4705483-5 (Version None)
Quarter: 2005Q2

REPORT INFORMATION
  Report Type: 
  Country: None (occurrence: None)
  Receive Date: 20050630
  Receipt Date: 20050630
  Transmission Date: 20051028
  Serious: Yes (Hospitalization)
  Sender: FDA-Public Use
  Company Number: None

PATIENT
  Age: 41 Year
  Sex: Male
  Weight: 92.5 kg

DRUGS (9)
  1. BENZTROPINE [Suspect]
     Dosage: 1MG, BID, BY MOUTH
     Route: 048
     Dates: start: 20040623, end: 20040711
  2. NICOTINE TRANSDERMAL PATCH [Concomitant]
  3. VENLAFAXINE HCL (EFFEXOR) [Concomitant]
  4. MULTI-VITAMINS [Concomitant]
  5. FOLIC ACID [Concomitant]
  6. LORAZEPAM [Concomitant]
  7. ABILIFY [Concomitant]
  8. THIAMINE HCL [Concomitant]
  9. HALOPERIDOL [Concomitant]

REACTIONS (4)
  - CONFUSIONAL STATE [None]
  - DELIRIUM [None]
  - HALLUCINATION [None]
  - OVERDOSE [None]
